FAERS Safety Report 5511051-8 (Version None)
Quarter: 2007Q4

REPORT INFORMATION
  Report Type: 
  Country: None (occurrence: None)
  Receive Date: 20071109
  Receipt Date: 20071031
  Transmission Date: 20080405
  Serious: Yes (Hospitalization)
  Sender: FDA-Public Use
  Company Number: NZ-TYCO HEALTHCARE/MALLINCKRODT-T200701352

PATIENT

DRUGS (12)
  1. MORPHINE SULFATE [Suspect]
     Indication: BACK PAIN
     Dosage: .4 MG, SINGLE
  2. MORPHINE SULFATE [Suspect]
     Dosage: 3 MG, SINGLE
     Route: 042
  3. MORPHINE SULFATE [Suspect]
     Dosage: 4 MG, SINGLE
     Route: 042
  4. MORPHINE SULFATE [Suspect]
     Dosage: 1.5 MG, BOLUS
     Route: 042
  5. ACETAMINOPHEN [Concomitant]
     Dosage: 1 G, Q6H PRN
  6. MIDAZOLAM HCL [Concomitant]
     Indication: ANAESTHESIA
     Dosage: 2 MG, UNK
  7. PROPOFOL [Concomitant]
     Indication: ANAESTHESIA
     Dosage: 180 MG, UNK
  8. REMIFENTANIL [Concomitant]
     Indication: ANAESTHESIA
     Dosage: 0.25 UG/KG/MIN
  9. REMIFENTANIL [Concomitant]
     Dosage: 0.07-0.25 UG/KG/MIN
  10. ROCURONIUM BROMIDE [Concomitant]
     Indication: ANAESTHESIA
     Dosage: 40 MG, UNK
  11. SEVOFLURANE [Concomitant]
     Indication: ANAESTHESIA
  12. BUPIVACAINE HYDROCHLORIDE [Concomitant]
     Dosage: 5 MG, UNK

REACTIONS (2)
  - LOSS OF CONSCIOUSNESS [None]
  - RESPIRATORY DISTRESS [None]
